FAERS Safety Report 9069444 (Version 1)
Quarter: 2013Q1

REPORT INFORMATION
  Report Type: Spontaneous
  Country: US (occurrence: US)
  Receive Date: 20130131
  Receipt Date: 20130131
  Transmission Date: 20140127
  Serious: No
  Sender: FDA-Public Use
  Company Number: US-ABBOTT-12P-163-0990798-00

PATIENT
  Age: 17 Year
  Sex: Female

DRUGS (2)
  1. HUMIRA [Suspect]
     Indication: COGAN^S SYNDROME
     Route: 058
     Dates: start: 201208, end: 201209
  2. HUMIRA [Suspect]
     Dates: start: 201209

REACTIONS (5)
  - Off label use [Not Recovered/Not Resolved]
  - Headache [Not Recovered/Not Resolved]
  - Cerebral disorder [Unknown]
  - Nervous system disorder [Unknown]
  - Cogan^s syndrome [Unknown]
